FAERS Safety Report 4593174-3 (Version None)
Quarter: 2005Q1

REPORT INFORMATION
  Report Type: 
  Country: None (occurrence: None)
  Receive Date: 20050224
  Receipt Date: 20040213
  Transmission Date: 20050727
  Serious: No
  Sender: FDA-Public Use
  Company Number: US-BRISTOL-MYERS SQUIBB COMPANY-12512679

PATIENT
  Age: 72 Year
  Sex: Female
  Weight: 54 kg

DRUGS (6)
  1. EXCEDRIN (MIGRAINE) [Suspect]
     Indication: HEADACHE
     Route: 048
     Dates: start: 20040211, end: 20040211
  2. ZOCOR [Concomitant]
  3. URECHOLINE [Concomitant]
  4. FOSAMAX [Concomitant]
  5. VITAMINS [Concomitant]
  6. CALCIUM GLUCONATE [Concomitant]

REACTIONS (1)
  - DRUG INEFFECTIVE [None]
